FAERS Safety Report 13019093 (Version 1)
Quarter: 2016Q4

REPORT INFORMATION
  Report Type: Spontaneous
  Country: US (occurrence: US)
  Receive Date: 20161212
  Receipt Date: 20161212
  Transmission Date: 20170207
  Serious: No
  Sender: FDA-Public Use
  Company Number: US-ROCHE-1737664

PATIENT
  Age: 78 Year
  Sex: Female

DRUGS (2)
  1. ALTRAMET [Concomitant]
     Indication: PAIN
  2. VALIUM [Suspect]
     Active Substance: DIAZEPAM
     Indication: NERVOUSNESS
     Route: 065

REACTIONS (1)
  - Mental disorder [Unknown]
